FAERS Safety Report 17296523 (Version 4)
Quarter: 2020Q2

REPORT INFORMATION
  Report Type: Spontaneous
  Country: US (occurrence: US)
  Receive Date: 20200121
  Receipt Date: 20200618
  Transmission Date: 20200713
  Serious: Yes (Other)
  Sender: FDA-Public Use
  Company Number: US-JNJFOC-20200119172

PATIENT
  Sex: Male
  Weight: 79.9 kg

DRUGS (1)
  1. RISPERDAL [Suspect]
     Active Substance: RISPERIDONE
     Indication: SCHIZOPHRENIA
     Route: 065
     Dates: start: 1995, end: 201906

REACTIONS (8)
  - Tremor [Unknown]
  - Obesity [Recovering/Resolving]
  - Tooth injury [Unknown]
  - Hypertension [Recovering/Resolving]
  - Drooling [Unknown]
  - Blood cholesterol increased [Recovering/Resolving]
  - Tardive dyskinesia [Recovered/Resolved]
  - Vision blurred [Recovering/Resolving]

NARRATIVE: CASE EVENT DATE: 2019
